FAERS Safety Report 5518855-6 (Version None)
Quarter: 2007Q4

REPORT INFORMATION
  Report Type: 
  Country: None (occurrence: None)
  Receive Date: 20071113
  Receipt Date: 20071113
  Transmission Date: 20080405
  Serious: Yes (Death, Life-Threatening, Hospitalization)
  Sender: FDA-Public Use
  Company Number: 1-15460103

PATIENT
  Age: 68 Year
  Sex: Male

DRUGS (1)
  1. ABBOKINASE [Suspect]
     Indication: VASCULAR OCCLUSION
     Dosage: INTRAVENOUS (NOT SPECIFIED)
     Route: 042

REACTIONS (14)
  - ANAEMIA [None]
  - CEREBELLAR SYNDROME [None]
  - CEREBRAL ARTERY EMBOLISM [None]
  - CEREBRAL HAEMORRHAGE [None]
  - CONFUSIONAL STATE [None]
  - FEMORAL ARTERY OCCLUSION [None]
  - HEMIANOPIA HOMONYMOUS [None]
  - HYPOKALAEMIA [None]
  - LABORATORY TEST ABNORMAL [None]
  - LIVER FUNCTION TEST ABNORMAL [None]
  - METASTASES TO CENTRAL NERVOUS SYSTEM [None]
  - METASTASES TO HEART [None]
  - PERIPHERAL COLDNESS [None]
  - REFLEXES ABNORMAL [None]
